FAERS Safety Report 17657444 (Version 1)
Quarter: 2020Q2

REPORT INFORMATION
  Report Type: Spontaneous
  Country: DK (occurrence: DK)
  Receive Date: 20200410
  Receipt Date: 20200410
  Transmission Date: 20200713
  Serious: Yes (Life-Threatening, Hospitalization)
  Sender: FDA-Public Use
  Company Number: DK-ARRAY-2020-07737

PATIENT

DRUGS (11)
  1. PARACETAMOL [Concomitant]
     Active Substance: ACETAMINOPHEN
     Indication: PAIN
     Dosage: 1000MG PRN (MAX 2G/DAY)
     Route: 048
     Dates: start: 20200103
  2. DOMPERIDONE [Concomitant]
     Active Substance: DOMPERIDONE
     Indication: PRODUCT USED FOR UNKNOWN INDICATION
     Dosage: UNK
     Route: 048
  3. CALCIUM + VITAMIN D [Concomitant]
     Active Substance: CALCIUM\VITAMIN D
     Indication: MINERAL SUPPLEMENTATION
     Dosage: DOSAGE 400 MG + 19 ?G
     Route: 048
     Dates: start: 20140405
  4. MEKTOVI [Suspect]
     Active Substance: BINIMETINIB
     Indication: MALIGNANT MELANOMA
     Dosage: 60 MG DAILY
     Route: 048
     Dates: start: 20190701, end: 20200227
  5. TRAMADOL. [Concomitant]
     Active Substance: TRAMADOL
     Indication: PAIN
     Dosage: 50 MG PRN (4 DF MAX/DAY)
     Route: 048
     Dates: start: 20200103, end: 20200312
  6. PENTASA [Concomitant]
     Active Substance: MESALAMINE
     Indication: COLITIS ULCERATIVE
     Dosage: 2G/DAY
     Route: 048
     Dates: start: 20200302
  7. ZADITEN [Concomitant]
     Active Substance: KETOTIFEN FUMARATE
     Indication: CONJUNCTIVITIS ALLERGIC
     Dosage: 4 DROPS/DAYS
     Route: 050
     Dates: start: 20171020
  8. BRAFTOVI [Suspect]
     Active Substance: ENCORAFENIB
     Indication: MALIGNANT MELANOMA
     Dosage: 300 MG/DAY
     Route: 048
     Dates: start: 20190701, end: 20200227
  9. IMODIUM [Concomitant]
     Active Substance: LOPERAMIDE HYDROCHLORIDE
     Indication: DIARRHOEA
     Dosage: UNK
     Route: 048
     Dates: start: 20190417
  10. INNOHEP [Concomitant]
     Active Substance: TINZAPARIN SODIUM
     Indication: THROMBOSIS
     Dosage: DOSAGE: 12000 ANTI-XA IE
     Route: 058
     Dates: start: 20200123
  11. ZOPICLONE [Concomitant]
     Active Substance: ZOPICLONE
     Indication: INSOMNIA
     Dosage: 3.75 MG/DAY
     Route: 048
     Dates: start: 20200103

REACTIONS (9)
  - Hypotension [Recovering/Resolving]
  - Myocarditis [Recovering/Resolving]
  - Tachycardia [Recovering/Resolving]
  - Back pain [Unknown]
  - Cardiogenic shock [Recovering/Resolving]
  - Renal failure [Recovering/Resolving]
  - Off label use [Unknown]
  - Cardiac failure acute [Recovering/Resolving]
  - Dyspnoea [Recovering/Resolving]

NARRATIVE: CASE EVENT DATE: 20190701
